FAERS Safety Report 12977301 (Version 1)
Quarter: 2016Q4

REPORT INFORMATION
  Report Type: Spontaneous
  Country: CA (occurrence: CA)
  Receive Date: 20161128
  Receipt Date: 20161128
  Transmission Date: 20170207
  Serious: Yes (Hospitalization, Other)
  Sender: FDA-Public Use
  Company Number: CA-CONCORDIA PHARMACEUTICALS INC.-GSH201611-005997

PATIENT
  Sex: Female

DRUGS (6)
  1. METHOTREXATE. [Concomitant]
     Active Substance: METHOTREXATE
     Dates: start: 20120803, end: 201309
  2. HUMIRA [Concomitant]
     Active Substance: ADALIMUMAB
     Dates: start: 201305, end: 201410
  3. ACTEMRA [Concomitant]
     Active Substance: TOCILIZUMAB
     Dates: start: 20141111, end: 201608
  4. SULFASALAZINE. [Concomitant]
     Active Substance: SULFASALAZINE
     Dates: start: 20130403, end: 201410
  5. PLAQUENIL [Suspect]
     Active Substance: HYDROXYCHLOROQUINE SULFATE
     Dates: start: 20111104, end: 20120803
  6. ARAVA [Suspect]
     Active Substance: LEFLUNOMIDE
     Dates: start: 20121120, end: 20130106

REACTIONS (5)
  - Intestinal perforation [Unknown]
  - Drug hypersensitivity [Unknown]
  - Rash [Unknown]
  - Liver function test increased [Unknown]
  - Urticaria [Unknown]
